FAERS Safety Report 8937671 (Version 2)
Quarter: 2013Q2

REPORT INFORMATION
  Report Type: Spontaneous
  Country: US (occurrence: None)
  Receive Date: 20121123
  Receipt Date: 20130507
  Transmission Date: 20140414
  Serious: Yes (Hospitalization, Other)
  Sender: FDA-Public Use
  Company Number: ADR-2012-02122

PATIENT
  Age: 20 Year
  Sex: Male

DRUGS (2)
  1. BACLOFEN [Suspect]
     Indication: MUSCLE SPASTICITY
  2. BACLOFEN [Suspect]
     Indication: HEAD INJURY

REACTIONS (11)
  - Lethargy [None]
  - Convulsion [None]
  - Dyspnoea [None]
  - Trismus [None]
  - Confusional state [None]
  - Heart rate decreased [None]
  - Oxygen saturation decreased [None]
  - Blood pressure increased [None]
  - Implant site infection [None]
  - Implant site discharge [None]
  - Purulent discharge [None]
